APPROVED DRUG PRODUCT: FOLIC ACID
Active Ingredient: FOLIC ACID
Strength: 1MG
Dosage Form/Route: TABLET;ORAL
Application: A040796 | Product #001 | TE Code: AA
Applicant: LEADING PHARMA LLC
Approved: Jan 12, 2009 | RLD: No | RS: No | Type: RX